FAERS Safety Report 6268363-2 (Version None)
Quarter: 2009Q3

REPORT INFORMATION
  Report Type: 
  Country: None (occurrence: None)
  Receive Date: 20090713
  Receipt Date: 20090713
  Transmission Date: 20100115
  Serious: Yes (Other)
  Sender: FDA-Public Use
  Company Number: None

PATIENT
  Age: 73 Year
  Sex: Female
  Weight: 77.1115 kg

DRUGS (2)
  1. HYDROQUINONE FOUR -4%- PERCENT PERRIGO [Suspect]
     Indication: RASH ERYTHEMATOUS
     Dosage: RUB INTO SKIN TWICE A DAY
     Dates: start: 20090520, end: 20090522
  2. HYDROQUINONE FOUR -4%- PERCENT PERRIGO [Suspect]
     Indication: SKIN DEPIGMENTATION
     Dosage: RUB INTO SKIN TWICE A DAY
     Dates: start: 20090520, end: 20090522

REACTIONS (1)
  - DRUG HYPERSENSITIVITY [None]
